FAERS Safety Report 7396394-8 (Version None)
Quarter: 2011Q1

REPORT INFORMATION
  Report Type: 
  Country: None (occurrence: None)
  Receive Date: 20110325
  Receipt Date: 20110309
  Transmission Date: 20110831
  Serious: Yes (Hospitalization)
  Sender: FDA-Public Use
  Company Number: 2011MA002560

PATIENT
  Age: 87 Year
  Sex: Male

DRUGS (8)
  1. FLOXACILLIN SODIUM [Suspect]
     Indication: ARTHRITIS BACTERIAL
     Dosage: 1 G; QID; PO
     Route: 048
     Dates: start: 20101227, end: 20110107
  2. IBUPROFEN [Concomitant]
  3. LAXIDO [Concomitant]
  4. FLOXACILLIN SODIUM [Suspect]
     Indication: ARTHRITIS BACTERIAL
     Dosage: 2 G; QID; IV
     Route: 042
  5. WARFARIN [Concomitant]
  6. ACETYLSALICYLIC ACID SRT [Concomitant]
  7. FLUOXETINE [Suspect]
     Indication: DEPRESSION
     Dosage: 20 MG; QD; PO
     Route: 048
     Dates: start: 20110122, end: 20110124
  8. OMEPRAZOLE [Concomitant]

REACTIONS (2)
  - JAUNDICE [None]
  - LIVER DISORDER [None]
